FAERS Safety Report 7456023-1 (Version None)
Quarter: 2011Q2

REPORT INFORMATION
  Report Type: 
  Country: None (occurrence: None)
  Receive Date: 20110503
  Receipt Date: 20110427
  Transmission Date: 20111010
  Serious: Yes (Life-Threatening, Hospitalization, Disabling)
  Sender: FDA-Public Use
  Company Number: US-MERCK-1104USA03861

PATIENT
  Age: 38 Year
  Sex: Female

DRUGS (16)
  1. CLEOCIN [Concomitant]
     Route: 065
  2. IRON (UNSPECIFIED) [Concomitant]
     Route: 065
  3. DIFLUCAN [Concomitant]
     Route: 065
  4. DYAZIDE [Concomitant]
     Route: 065
  5. LOPRESSOR [Concomitant]
     Route: 065
  6. MARINOL [Concomitant]
     Route: 065
  7. LASIX [Concomitant]
     Route: 065
  8. PRASTERONE [Concomitant]
     Route: 065
  9. METANX [Concomitant]
     Route: 065
  10. VALTREX [Concomitant]
     Route: 065
  11. ISENTRESS [Suspect]
     Indication: HIV INFECTION
     Route: 048
  12. TRUVADA [Concomitant]
     Route: 065
  13. VITAMINS (UNSPECIFIED) [Concomitant]
     Route: 065
  14. POTASSIUM CHLORIDE [Concomitant]
     Route: 065
  15. INTELENCE [Concomitant]
     Dosage: 1-2 PILLS TWICE A DAY
     Route: 048
  16. SYNTHROID [Concomitant]
     Route: 065

REACTIONS (2)
  - BLOOD CREATININE INCREASED [None]
  - RENAL IMPAIRMENT [None]
